FAERS Safety Report 10074270 (Version 1)
Quarter: 2014Q2

REPORT INFORMATION
  Report Type: Spontaneous
  Country: US (occurrence: US)
  Receive Date: 20140411
  Receipt Date: 20140411
  Transmission Date: 20141212
  Serious: No
  Sender: FDA-Public Use
  Company Number: US-SANOFI-AVENTIS-2013SA040504

PATIENT
  Age: 25 Year
  Sex: Female
  Weight: 69.4 kg

DRUGS (1)
  1. ALLEGRA D [Suspect]
     Dosage: START DATE: FEW WEEKS AGO
     Dates: end: 201303

REACTIONS (1)
  - Insomnia [Recovered/Resolved]
